FAERS Safety Report 10161940 (Version 2)
Quarter: 2014Q3

REPORT INFORMATION
  Report Type: Report from Study
  Country: US (occurrence: US)
  Receive Date: 20140509
  Receipt Date: 20140703
  Transmission Date: 20150326
  Serious: Yes (Other)
  Sender: FDA-Public Use
  Company Number: US-ROCHE-1391869

PATIENT
  Sex: Female

DRUGS (6)
  1. AVASTIN [Suspect]
     Active Substance: BEVACIZUMAB
     Indication: COLON CANCER STAGE IV
     Route: 042
     Dates: start: 201309
  2. XELODA [Suspect]
     Active Substance: CAPECITABINE
     Indication: COLON CANCER STAGE IV
     Dosage: 2 WEEKS ON AND 1 WEEK OFF
     Route: 065
     Dates: start: 201404
  3. XELODA [Suspect]
     Active Substance: CAPECITABINE
     Dosage: DOSE DECREASED
     Route: 065
  4. OXALIPLATIN. [Concomitant]
     Active Substance: OXALIPLATIN
     Indication: COLON CANCER STAGE IV
     Dosage: ONE WEEK ON AND ONE WEEK OFF
     Route: 065
     Dates: start: 201309, end: 201404
  5. LEVOTHYROXINE [Concomitant]
     Active Substance: LEVOTHYROXINE
     Route: 065
  6. RANITIDINE [Concomitant]
     Active Substance: RANITIDINE\RANITIDINE HYDROCHLORIDE
     Route: 065

REACTIONS (14)
  - Device related infection [Recovered/Resolved]
  - Abdominal discomfort [Recovered/Resolved]
  - Hypotension [Recovered/Resolved]
  - Heart rate increased [Recovered/Resolved]
  - Feeling hot [Recovered/Resolved]
  - Hallucination [Recovered/Resolved]
  - Dysgeusia [Recovered/Resolved]
  - Decreased appetite [Recovered/Resolved]
  - Pancreatitis [Recovered/Resolved]
  - Blister [Unknown]
  - Fatigue [Not Recovered/Not Resolved]
  - Palmar-plantar erythrodysaesthesia syndrome [Unknown]
  - Diarrhoea [Not Recovered/Not Resolved]
  - Erythema [Unknown]
